FAERS Safety Report 21822507 (Version 2)
Quarter: 2023Q1

REPORT INFORMATION
  Report Type: Spontaneous
  Country: US (occurrence: US)
  Receive Date: 20230105
  Receipt Date: 20230126
  Transmission Date: 20230417
  Serious: No
  Sender: FDA-Public Use
  Company Number: US-MYLANLABS-2022M1140778

PATIENT
  Age: 53 Year
  Sex: Female

DRUGS (1)
  1. SEMGLEE (INSULIN GLARGINE-YFGN) [Suspect]
     Active Substance: INSULIN GLARGINE-YFGN
     Indication: Diabetes mellitus
     Dosage: 88 INTERNATIONAL UNIT, BID
     Route: 065

REACTIONS (2)
  - Device issue [None]
  - Product quality issue [None]

NARRATIVE: CASE EVENT DATE: 20221212
